FAERS Safety Report 20827470 (Version 7)
Quarter: 2024Q2

REPORT INFORMATION
  Report Type: Report from Study
  Country: US (occurrence: US)
  Receive Date: 20220513
  Receipt Date: 20240628
  Transmission Date: 20240715
  Serious: Yes (Other)
  Sender: FDA-Public Use
  Company Number: US-TAKEDA-2022TUS030311

PATIENT
  Sex: Male

DRUGS (4)
  1. BRIGATINIB [Suspect]
     Active Substance: BRIGATINIB
     Indication: Brain neoplasm
     Dosage: 180 MILLIGRAM, QD
     Route: 065
     Dates: start: 202012
  2. BRIGATINIB [Suspect]
     Active Substance: BRIGATINIB
     Indication: Neurofibromatosis
     Dosage: 180 MILLIGRAM, QD
     Route: 065
     Dates: start: 20220510
  3. BRIGATINIB [Suspect]
     Active Substance: BRIGATINIB
     Indication: Cranial nerve neoplasm benign
     Dosage: 180 MILLIGRAM, QD
     Route: 048
     Dates: start: 20220601
  4. BRIGATINIB [Suspect]
     Active Substance: BRIGATINIB
     Dosage: 180 MILLIGRAM, QD
     Route: 048

REACTIONS (6)
  - Neoplasm progression [Unknown]
  - Deafness [Unknown]
  - Hypoacusis [Unknown]
  - Hereditary non-polyposis colorectal cancer syndrome [Unknown]
  - Product dose omission issue [Unknown]
  - Off label use [Unknown]
